APPROVED DRUG PRODUCT: CIBINQO
Active Ingredient: ABROCITINIB
Strength: 100MG
Dosage Form/Route: TABLET;ORAL
Application: N213871 | Product #002
Applicant: PFIZER INC
Approved: Jan 14, 2022 | RLD: Yes | RS: No | Type: RX

PATENTS:
Patent 9549929 | Expires: Feb 19, 2034
Patent 9035074 | Expires: Jan 14, 2036
Patent 9545405 | Expires: Feb 19, 2034

EXCLUSIVITY:
Code: NCE | Date: Jan 14, 2027
Code: NPP | Date: Feb 9, 2026